FAERS Safety Report 16184267 (Version 2)
Quarter: 2019Q2

REPORT INFORMATION
  Report Type: Spontaneous
  Country: US (occurrence: US)
  Receive Date: 20190411
  Receipt Date: 20190424
  Transmission Date: 20190711
  Serious: Yes (Death)
  Sender: FDA-Public Use
  Company Number: US-HORIZON-RAV-0093-2019

PATIENT
  Age: 15 Year
  Sex: Male

DRUGS (1)
  1. RAVICTI [Suspect]
     Active Substance: GLYCEROL PHENYLBUTYRATE
     Indication: LYSINURIC PROTEIN INTOLERANCE
     Dosage: 3 ML TID
     Route: 048
     Dates: start: 201306

REACTIONS (3)
  - Respiratory failure [Fatal]
  - Hypoxia [Fatal]
  - Off label use [Unknown]

NARRATIVE: CASE EVENT DATE: 201901
